FAERS Safety Report 8491417-7 (Version None)
Quarter: 2012Q3

REPORT INFORMATION
  Report Type: 
  Country: None (occurrence: None)
  Receive Date: 20120706
  Receipt Date: 20120629
  Transmission Date: 20120928
  Serious: Yes (Life-Threatening, Hospitalization, Other)
  Sender: FDA-Public Use
  Company Number: PHHY2012DE052765

PATIENT
  Sex: Male

DRUGS (6)
  1. GILENYA [Suspect]
     Indication: MULTIPLE SCLEROSIS
     Dosage: 0.5 MG, QD
     Route: 048
     Dates: start: 20111001, end: 20120601
  2. METHYLPREDNISOLONE [Concomitant]
     Dosage: 1000 MG, QD
     Route: 042
  3. CLOMIPRAMINE HCL [Concomitant]
     Dosage: 75 MG, QD
     Route: 048
     Dates: start: 20110601
  4. FAMPRIDINE [Concomitant]
     Dosage: 10 MG, QD
     Route: 048
  5. TYSABRI [Suspect]
     Dates: start: 20070201, end: 20110721
  6. PREDNISOLONE [Concomitant]
     Dosage: 20 MG, QD
     Route: 048
     Dates: start: 20120531

REACTIONS (4)
  - PERFORMANCE STATUS DECREASED [None]
  - METASTASES TO SPINE [None]
  - CANCER PAIN [None]
  - SMALL CELL LUNG CANCER METASTATIC [None]
